FAERS Safety Report 8840626 (Version 1)
Quarter: 2012Q4

REPORT INFORMATION
  Report Type: 
  Country: US (occurrence: US)
  Receive Date: 20121015
  Receipt Date: 20121015
  Transmission Date: 20130627
  Serious: No
  Sender: FDA-Public Use
  Company Number: US-ROCHE-GNE250479

PATIENT
  Age: 12 Year
  Sex: Male
  Weight: 34.5 kg

DRUGS (1)
  1. NUTROPIN AQ [Suspect]
     Indication: DWARFISM
     Route: 058
     Dates: start: 20071015

REACTIONS (1)
  - Injection site pain [Not Recovered/Not Resolved]
